FAERS Safety Report 6418710-3 (Version None)
Quarter: 2009Q4

REPORT INFORMATION
  Report Type: 
  Country: None (occurrence: None)
  Receive Date: 20091028
  Receipt Date: 20091023
  Transmission Date: 20100525
  Serious: Yes (Other)
  Sender: FDA-Public Use
  Company Number: US-GILEAD-2009-0021783

PATIENT
  Sex: Female

DRUGS (10)
  1. LETAIRIS [Suspect]
     Indication: PULMONARY ARTERIAL HYPERTENSION
     Route: 048
     Dates: start: 20090323, end: 20090326
  2. FLOLAN [Concomitant]
  3. REVATIO [Concomitant]
  4. DEMADEX [Concomitant]
  5. XANAX [Concomitant]
  6. CITALOPRAM HYDROBROMIDE [Concomitant]
  7. MAGNESIUM OXIDE [Concomitant]
  8. METFORMIN HCL [Concomitant]
  9. K-DUR [Concomitant]
  10. COMPAZINE [Concomitant]

REACTIONS (3)
  - LIVER FUNCTION TEST ABNORMAL [None]
  - NAUSEA [None]
  - VOMITING [None]
